FAERS Safety Report 7511202-X (Version None)
Quarter: 2011Q2

REPORT INFORMATION
  Report Type: 
  Country: None (occurrence: None)
  Receive Date: 20110531
  Receipt Date: 20110516
  Transmission Date: 20111010
  Serious: Yes (Hospitalization)
  Sender: FDA-Public Use
  Company Number: PHHY2011CA41650

PATIENT
  Sex: Male

DRUGS (4)
  1. DIURETICS [Concomitant]
  2. BETA BLOCKING AGENTS [Concomitant]
  3. ALISKIREN [Suspect]
     Indication: HYPERTENSION
     Dosage: UNK
     Route: 048
     Dates: start: 20100331, end: 20110201
  4. TERAZOSIN HCL [Concomitant]

REACTIONS (2)
  - DYSPNOEA [None]
  - BLOOD CREATININE INCREASED [None]
